FAERS Safety Report 15651806 (Version 1)
Quarter: 2018Q4

REPORT INFORMATION
  Report Type: Spontaneous
  Country: IS (occurrence: IS)
  Receive Date: 20181123
  Receipt Date: 20181123
  Transmission Date: 20190205
  Serious: Yes (Hospitalization)
  Sender: FDA-Public Use
  Company Number: IS-NOVOPROD-632727

PATIENT
  Age: 46 Year
  Sex: Female

DRUGS (3)
  1. FIASP [Suspect]
     Active Substance: INSULIN ASPART
     Dosage: 28 U
     Route: 065
  2. TOUJEO [Suspect]
     Active Substance: INSULIN GLARGINE
     Indication: TYPE 1 DIABETES MELLITUS
     Dosage: 28 U
     Route: 065
  3. FIASP [Suspect]
     Active Substance: INSULIN ASPART
     Indication: TYPE 1 DIABETES MELLITUS
     Dosage: 2 U

REACTIONS (2)
  - Wrong product administered [Unknown]
  - Malaise [Unknown]

NARRATIVE: CASE EVENT DATE: 201811
